FAERS Safety Report 13649931 (Version 1)
Quarter: 2017Q2

REPORT INFORMATION
  Report Type: Spontaneous
  Country: US (occurrence: US)
  Receive Date: 20170613
  Receipt Date: 20170613
  Transmission Date: 20170830
  Serious: No
  Sender: FDA-Public Use
  Company Number: None

PATIENT
  Age: 35 Year
  Sex: Female
  Weight: 103.5 kg

DRUGS (2)
  1. SULFAMETHOXAZOLE-TRIMETHOPRIM [Suspect]
     Active Substance: SULFAMETHOXAZOLE\TRIMETHOPRIM
     Indication: SKIN INFECTION
     Dosage: ?          QUANTITY:1 TABLET(S);?
     Route: 048
     Dates: start: 20170605, end: 20170613
  2. PROBIOTICS [Concomitant]
     Active Substance: PROBIOTICS NOS

REACTIONS (7)
  - Nausea [None]
  - Photophobia [None]
  - Pyrexia [None]
  - Headache [None]
  - Fatigue [None]
  - Vomiting [None]
  - Dizziness [None]

NARRATIVE: CASE EVENT DATE: 20170609
